FAERS Safety Report 5279441-9 (Version None)
Quarter: 2007Q1

REPORT INFORMATION
  Report Type: 
  Country: None (occurrence: None)
  Receive Date: 20070328
  Receipt Date: 20070314
  Transmission Date: 20070707
  Serious: Yes (Death, Other)
  Sender: FDA-Public Use
  Company Number: US-ELI_LILLY_AND_COMPANY-US200703002884

PATIENT
  Age: 84 Year
  Sex: Male

DRUGS (1)
  1. CYMBALTA [Suspect]
     Indication: DEPRESSION
     Dosage: 40 MG, DAILY (1/D)
     Route: 048
     Dates: start: 20050501

REACTIONS (5)
  - COMPLETED SUICIDE [None]
  - FATIGUE [None]
  - HOMICIDE [None]
  - LEUKAEMIA [None]
  - WHITE BLOOD CELL COUNT INCREASED [None]
